FAERS Safety Report 7826106-2 (Version None)
Quarter: 2011Q4

REPORT INFORMATION
  Report Type: 
  Country: None (occurrence: None)
  Receive Date: 20111019
  Receipt Date: 20111013
  Transmission Date: 20120403
  Serious: Yes (Death)
  Sender: FDA-Public Use
  Company Number: US-CELGENEUS-163-21880-11051948

PATIENT
  Sex: Male
  Weight: 87.168 kg

DRUGS (8)
  1. REVLIMID [Suspect]
     Indication: MULTIPLE MYELOMA
     Dosage: 15 MILLIGRAM
     Route: 048
     Dates: start: 20110325, end: 20110713
  2. OCCUVITE [Concomitant]
     Route: 048
  3. DEXAMETHASONE [Concomitant]
     Dosage: 40 MILLIGRAM
     Route: 048
     Dates: start: 20110407
  4. RENEVELA [Concomitant]
     Dosage: 800 MILLIGRAM
     Route: 048
  5. VELCADE [Concomitant]
     Dosage: 2.8 MILLIGRAM
     Route: 041
     Dates: start: 20110325
  6. COUMADIN [Concomitant]
     Dosage: 3 MILLIGRAM
     Route: 048
  7. NEPHROVITE [Concomitant]
     Dosage: 40 MILLIGRAM
     Route: 048
  8. ONDANSETRON [Concomitant]
     Indication: NAUSEA
     Dosage: 8 MILLIGRAM
     Route: 048
     Dates: start: 20110407

REACTIONS (2)
  - INTESTINAL HAEMORRHAGE [None]
  - RASH PRURITIC [None]
